FAERS Safety Report 25390474 (Version 1)
Quarter: 2025Q2

REPORT INFORMATION
  Report Type: Report from Study
  Country: BR (occurrence: BR)
  Receive Date: 20250603
  Receipt Date: 20250603
  Transmission Date: 20250716
  Serious: Yes (Disabling)
  Sender: MYLAN
  Company Number: BR-MYLANLABS-2025M1046486

PATIENT
  Age: 83 Year
  Sex: Female

DRUGS (16)
  1. VENLAFAXINE HYDROCHLORIDE [Interacting]
     Active Substance: VENLAFAXINE HYDROCHLORIDE
     Indication: Product used for unknown indication
     Dosage: 37.5 MILLIGRAM, QD (ONCE A DAY)
     Dates: start: 20250507, end: 20250513
  2. VENLAFAXINE HYDROCHLORIDE [Interacting]
     Active Substance: VENLAFAXINE HYDROCHLORIDE
     Dosage: 37.5 MILLIGRAM, QD (ONCE A DAY)
     Dates: start: 20250507, end: 20250513
  3. VENLAFAXINE HYDROCHLORIDE [Interacting]
     Active Substance: VENLAFAXINE HYDROCHLORIDE
     Dosage: 37.5 MILLIGRAM, QD (ONCE A DAY)
     Route: 048
     Dates: start: 20250507, end: 20250513
  4. VENLAFAXINE HYDROCHLORIDE [Interacting]
     Active Substance: VENLAFAXINE HYDROCHLORIDE
     Dosage: 37.5 MILLIGRAM, QD (ONCE A DAY)
     Route: 048
     Dates: start: 20250507, end: 20250513
  5. VENLAFAXINE HYDROCHLORIDE [Interacting]
     Active Substance: VENLAFAXINE HYDROCHLORIDE
     Dosage: 75 MILLIGRAM, QD (ONCE A DAY)
     Dates: start: 202505, end: 202505
  6. VENLAFAXINE HYDROCHLORIDE [Interacting]
     Active Substance: VENLAFAXINE HYDROCHLORIDE
     Dosage: 75 MILLIGRAM, QD (ONCE A DAY)
     Dates: start: 202505, end: 202505
  7. VENLAFAXINE HYDROCHLORIDE [Interacting]
     Active Substance: VENLAFAXINE HYDROCHLORIDE
     Dosage: 75 MILLIGRAM, QD (ONCE A DAY)
     Route: 048
     Dates: start: 202505, end: 202505
  8. VENLAFAXINE HYDROCHLORIDE [Interacting]
     Active Substance: VENLAFAXINE HYDROCHLORIDE
     Dosage: 75 MILLIGRAM, QD (ONCE A DAY)
     Route: 048
     Dates: start: 202505, end: 202505
  9. VENLAFAXINE HYDROCHLORIDE [Interacting]
     Active Substance: VENLAFAXINE HYDROCHLORIDE
     Dosage: 37.5 MILLIGRAM, QD (ONCE A DAY)
     Dates: start: 202505
  10. VENLAFAXINE HYDROCHLORIDE [Interacting]
     Active Substance: VENLAFAXINE HYDROCHLORIDE
     Dosage: 37.5 MILLIGRAM, QD (ONCE A DAY)
     Route: 048
     Dates: start: 202505
  11. VENLAFAXINE HYDROCHLORIDE [Interacting]
     Active Substance: VENLAFAXINE HYDROCHLORIDE
     Dosage: 37.5 MILLIGRAM, QD (ONCE A DAY)
     Dates: start: 202505
  12. VENLAFAXINE HYDROCHLORIDE [Interacting]
     Active Substance: VENLAFAXINE HYDROCHLORIDE
     Dosage: 37.5 MILLIGRAM, QD (ONCE A DAY)
     Route: 048
     Dates: start: 202505
  13. MIRTAZAPINE [Interacting]
     Active Substance: MIRTAZAPINE
     Indication: Product used for unknown indication
     Dosage: UNK, PM (IN THE EVENING)
  14. MIRTAZAPINE [Interacting]
     Active Substance: MIRTAZAPINE
     Dosage: UNK, PM (IN THE EVENING)
     Route: 065
  15. MIRTAZAPINE [Interacting]
     Active Substance: MIRTAZAPINE
     Dosage: UNK, PM (IN THE EVENING)
     Route: 065
  16. MIRTAZAPINE [Interacting]
     Active Substance: MIRTAZAPINE
     Dosage: UNK, PM (IN THE EVENING)

REACTIONS (3)
  - Loss of personal independence in daily activities [Recovering/Resolving]
  - Negative thoughts [Recovering/Resolving]
  - Potentiating drug interaction [Not Recovered/Not Resolved]

NARRATIVE: CASE EVENT DATE: 20250501
